FAERS Safety Report 4654746-0 (Version None)
Quarter: 2005Q2

REPORT INFORMATION
  Report Type: 
  Country: None (occurrence: None)
  Receive Date: 20050505
  Receipt Date: 20050505
  Transmission Date: 20051028
  Serious: Yes (Other)
  Sender: FDA-Public Use
  Company Number: None

PATIENT
  Sex: Male
  Weight: 74.8435 kg

DRUGS (2)
  1. OXYCONTIN [Suspect]
     Indication: OSTEOARTHRITIS
     Dosage: 80 MG Q8H
     Dates: start: 20050101
  2. OXYCONTIN [Suspect]
     Dosage: 40 MG Q8H
     Dates: start: 20050101

REACTIONS (3)
  - ABDOMINAL PAIN UPPER [None]
  - NAUSEA [None]
  - VOMITING [None]
